FAERS Safety Report 9749758 (Version 1)
Quarter: 2013Q4

REPORT INFORMATION
  Report Type: Spontaneous
  Country: US (occurrence: US)
  Receive Date: 20131212
  Receipt Date: 20131212
  Transmission Date: 20140711
  Serious: Yes (Other)
  Sender: FDA-Public Use
  Company Number: US-BAYER-2013-151224

PATIENT
  Age: 65 Year
  Sex: Female
  Weight: 61 kg

DRUGS (5)
  1. ALKA-SELTZER ORIGINAL [Suspect]
     Indication: ABDOMINAL DISCOMFORT
     Dosage: 2 DF, UNK
     Route: 048
  2. ATENOLOL [Concomitant]
  3. POTASSIUM [Concomitant]
  4. VICODIN [Concomitant]
  5. NAPROSYN [Concomitant]

REACTIONS (1)
  - Rectal haemorrhage [Recovered/Resolved]
